FAERS Safety Report 6380112-6 (Version None)
Quarter: 2009Q3

REPORT INFORMATION
  Report Type: 
  Country: None (occurrence: None)
  Receive Date: 20090929
  Receipt Date: 20071219
  Transmission Date: 20100115
  Serious: Yes (Other)
  Sender: FDA-Public Use
  Company Number: US-ASTRAZENECA-2007UW14915

PATIENT
  Age: 15888 Day
  Sex: Female
  Weight: 68 kg

DRUGS (5)
  1. SEROQUEL [Suspect]
     Route: 048
     Dates: start: 20041129
  2. SEROQUEL [Suspect]
     Dosage: 25 - 50 MG  QD - BID
     Route: 048
     Dates: start: 20041201, end: 20060528
  3. EFFEXOR [Concomitant]
     Indication: DEPRESSION
     Dosage: 75-150 MG
     Dates: start: 20010101
  4. MONODOX [Concomitant]
     Dates: start: 20010101
  5. WELLBUTRIN [Concomitant]
     Dates: start: 20010101

REACTIONS (5)
  - HEPATOMEGALY [None]
  - PANCREATIC DISORDER [None]
  - PANCREATIC ENLARGEMENT [None]
  - RENAL DISORDER [None]
  - TYPE 2 DIABETES MELLITUS [None]
